FAERS Safety Report 6837159-2 (Version None)
Quarter: 2010Q3

REPORT INFORMATION
  Report Type: 
  Country: None (occurrence: None)
  Receive Date: 20100713
  Receipt Date: 20070507
  Transmission Date: 20110219
  Serious: No
  Sender: FDA-Public Use
  Company Number: US-PFIZER INC-2007037828

PATIENT
  Sex: Female
  Weight: 74.84 kg

DRUGS (2)
  1. CHANTIX [Suspect]
     Indication: SMOKING CESSATION THERAPY
     Dates: start: 20070401
  2. ZYRTEC [Concomitant]
     Indication: SEASONAL ALLERGY
     Dates: end: 20070501

REACTIONS (2)
  - ANXIETY [None]
  - INSOMNIA [None]
